FAERS Safety Report 8381910-X (Version None)
Quarter: 2012Q2

REPORT INFORMATION
  Report Type: 
  Country: None (occurrence: None)
  Receive Date: 20120522
  Receipt Date: 20120522
  Transmission Date: 20120825
  Serious: Yes (Other)
  Sender: FDA-Public Use
  Company Number: None

PATIENT
  Age: 32 Year
  Sex: Female
  Weight: 70.3075 kg

DRUGS (1)
  1. ZYRTEC [Suspect]
     Indication: MULTIPLE ALLERGIES
     Dosage: 10 MG 1 PER DAY PO
     Route: 048
     Dates: start: 20000101, end: 20120515

REACTIONS (4)
  - DRUG DEPENDENCE [None]
  - WITHDRAWAL SYNDROME [None]
  - PRURITUS GENERALISED [None]
  - PRODUCT LABEL ISSUE [None]
